FAERS Safety Report 23864082 (Version 1)
Quarter: 2024Q2

REPORT INFORMATION
  Report Type: Spontaneous
  Country: US (occurrence: None)
  Receive Date: 20240516
  Receipt Date: 20240516
  Transmission Date: 20240715
  Serious: Yes (Death)
  Sender: FDA-Public Use
  Company Number: None

PATIENT
  Age: 30 Year
  Sex: Male
  Weight: 94.95 kg

DRUGS (1)
  1. TECARTUS [Suspect]
     Active Substance: BREXUCABTAGENE AUTOLEUCEL
     Indication: Acute lymphocytic leukaemia
     Dates: start: 20240219

REACTIONS (4)
  - Neurotoxicity [None]
  - Cerebrovascular accident [None]
  - Cerebral haemorrhage [None]
  - Brain death [None]

NARRATIVE: CASE EVENT DATE: 20240322
